FAERS Safety Report 5634854-8 (Version None)
Quarter: 2008Q1

REPORT INFORMATION
  Report Type: 
  Country: None (occurrence: None)
  Receive Date: 20080221
  Receipt Date: 20080221
  Transmission Date: 20080703
  Serious: Yes (Hospitalization)
  Sender: FDA-Public Use
  Company Number: None

PATIENT
  Age: 84 Year
  Sex: Male

DRUGS (2)
  1. WARFARIN SODIUM [Suspect]
     Indication: ATRIAL FLUTTER
     Dosage: 5MG EVERY DAY PO
     Route: 048
     Dates: start: 20070906, end: 20070930
  2. FLUOROURACIL [Suspect]
     Dosage: 1050MG ONCE IV
     Route: 042
     Dates: start: 20070926, end: 20070926

REACTIONS (1)
  - EPISTAXIS [None]
